FAERS Safety Report 16838458 (Version 1)
Quarter: 2019Q3

REPORT INFORMATION
  Report Type: Spontaneous
  Country: US (occurrence: US)
  Receive Date: 20190923
  Receipt Date: 20190923
  Transmission Date: 20191005
  Serious: Yes (Other)
  Sender: FDA-Public Use
  Company Number: US-SUN PHARMACEUTICAL INDUSTRIES LTD-2018R1-193477

PATIENT
  Sex: Female
  Weight: 64.41 kg

DRUGS (1)
  1. BACTRIM [Suspect]
     Active Substance: SULFAMETHOXAZOLE\TRIMETHOPRIM
     Indication: PRODUCT USED FOR UNKNOWN INDICATION
     Dosage: UNK
     Route: 065
     Dates: start: 2018

REACTIONS (6)
  - Hypersensitivity [Recovered/Resolved]
  - Abdominal discomfort [Unknown]
  - Chills [Unknown]
  - Feeling abnormal [Unknown]
  - Dyspnoea [Unknown]
  - Disorientation [Unknown]

NARRATIVE: CASE EVENT DATE: 2018
